FAERS Safety Report 8049925-9 (Version None)
Quarter: 2012Q1

REPORT INFORMATION
  Report Type: 
  Country: None (occurrence: None)
  Receive Date: 20120117
  Receipt Date: 20120112
  Transmission Date: 20120608
  Serious: Yes (Life-Threatening, Other)
  Sender: FDA-Public Use
  Company Number: US-ROXANE LABORATORIES, INC.-2012-RO-00458RO

PATIENT
  Age: 49 Year
  Sex: Male

DRUGS (3)
  1. AMLODIPINE [Suspect]
  2. TRAMADOL HCL [Suspect]
  3. CLONAZEPAM [Suspect]

REACTIONS (8)
  - NODAL RHYTHM [None]
  - BRADYCARDIA [None]
  - OLIGURIA [None]
  - RESPIRATORY FAILURE [None]
  - PULMONARY OEDEMA [None]
  - SUICIDE ATTEMPT [None]
  - RENAL FAILURE ACUTE [None]
  - HYPOTENSION [None]
